FAERS Safety Report 13923753 (Version 1)
Quarter: 2017Q3

REPORT INFORMATION
  Report Type: Spontaneous
  Country: US (occurrence: None)
  Receive Date: 20170830
  Receipt Date: 20170830
  Transmission Date: 20171127
  Serious: Yes (Death)
  Sender: FDA-Public Use
  Company Number: None

PATIENT
  Age: 82 Year
  Sex: Male

DRUGS (1)
  1. EYLEA [Suspect]
     Active Substance: AFLIBERCEPT
     Indication: MACULAR DEGENERATION
     Dosage: 2MG EVERY 2-3 MONTHS INTRAVITREALLY
     Dates: start: 201411, end: 201707

REACTIONS (1)
  - Death [None]

NARRATIVE: CASE EVENT DATE: 20170828
